FAERS Safety Report 8554459-9 (Version None)
Quarter: 2012Q3

REPORT INFORMATION
  Report Type: 
  Country: None (occurrence: None)
  Receive Date: 20120731
  Receipt Date: 20120723
  Transmission Date: 20120928
  Serious: Yes (Disabling, Other)
  Sender: FDA-Public Use
  Company Number: US-009507513-1207USA009865

PATIENT

DRUGS (42)
  1. IBUPROFEN (ADVIL) [Suspect]
     Dosage: UNK, PRN
  2. ZETIA [Suspect]
     Route: 048
  3. XALATAN [Suspect]
     Route: 047
  4. VIAGRA [Suspect]
  5. TIMOLOL MALEATE [Concomitant]
     Dosage: UNK, QID
  6. THERA TEARS [Concomitant]
  7. ALPRAZOLAM [Suspect]
  8. CODEINE [Suspect]
  9. LIPITOR [Suspect]
  10. CLOZAPINE [Concomitant]
  11. OMEGA-3 MARINE TRIGLYCERIDES [Concomitant]
  12. ASPIRIN [Concomitant]
  13. LOSARTAN POTASSIUM [Concomitant]
     Dosage: 0.125 MG, QD
     Route: 048
  14. MOTRIN [Suspect]
  15. REGLAN [Suspect]
  16. LOTRIMIN [Suspect]
  17. CYCLOSPORINE [Suspect]
  18. ALLOPURINOL [Concomitant]
     Dosage: UNK, QD
  19. LANTUS [Concomitant]
     Dosage: UNK, QD
  20. POTASSIUM CHLORIDE [Concomitant]
  21. PRAVASTATIN SODIUM [Concomitant]
     Dosage: UNK, QD
  22. PROZAC [Suspect]
  23. MOTRIN [Suspect]
     Dosage: UNK, PRN
  24. METFORMIN HYDROCHLORIDE [Suspect]
  25. DIGOXIN [Concomitant]
     Dosage: 0.125 MG, UNK
  26. DIAZEPAM [Concomitant]
  27. BILBERRY [Concomitant]
  28. ZOCOR [Suspect]
     Route: 048
  29. TRAMADOL HYDROCHLORIDE [Suspect]
  30. TOPROL-XL [Suspect]
  31. COREG [Suspect]
  32. LUMIGAN [Concomitant]
  33. FOLIC ACID [Concomitant]
  34. PROSCAR [Suspect]
     Route: 048
  35. PLAVIX [Suspect]
  36. FUROSEMIDE [Concomitant]
  37. OXYCODONE HCL [Concomitant]
     Dosage: UNK, QD
  38. GLUCOPHAGE [Suspect]
  39. LUVOX [Suspect]
  40. METOPROLOL TARTRATE [Suspect]
     Dosage: UNK, QD
  41. PILOCARPINE [Concomitant]
  42. ACETAMINOPHEN/HYDROCODONE BITARTRATE [Concomitant]

REACTIONS (14)
  - SLEEP DISORDER [None]
  - VOMITING [None]
  - DYSPNOEA [None]
  - BACK PAIN [None]
  - DRUG HYPERSENSITIVITY [None]
  - BLOOD GLUCOSE INCREASED [None]
  - FATIGUE [None]
  - NAUSEA [None]
  - HIP ARTHROPLASTY [None]
  - ASTHENIA [None]
  - SKIN IRRITATION [None]
  - ABASIA [None]
  - CONSTIPATION [None]
  - MYALGIA [None]
